FAERS Safety Report 12317755 (Version 1)
Quarter: 2016Q2

REPORT INFORMATION
  Report Type: Report from Study
  Country: US (occurrence: US)
  Receive Date: 20160429
  Receipt Date: 20160429
  Transmission Date: 20160815
  Serious: Yes (Death)
  Sender: FDA-Public Use
  Company Number: US-ACTELION-A-NJ2016-135435

PATIENT
  Age: 83 Year
  Sex: Female

DRUGS (1)
  1. VENTAVIS [Suspect]
     Active Substance: ILOPROST
     Indication: PULMONARY HYPERTENSION
     Dosage: 5 MCG,  6-9XDAY
     Route: 055
     Dates: start: 20111214, end: 20160421

REACTIONS (1)
  - Death [Fatal]

NARRATIVE: CASE EVENT DATE: 20160421
